FAERS Safety Report 10191305 (Version 1)
Quarter: 2014Q2

REPORT INFORMATION
  Report Type: Spontaneous
  Country: US (occurrence: US)
  Receive Date: 20140523
  Receipt Date: 20140523
  Transmission Date: 20141212
  Serious: No
  Sender: FDA-Public Use
  Company Number: US-009507513-1405USA008206

PATIENT
  Sex: Male

DRUGS (1)
  1. JANUVIA [Suspect]
     Dosage: ONE HALF OF THE 100MG TABLET TODAY
     Route: 048
     Dates: start: 20140515

REACTIONS (3)
  - Expired product administered [Unknown]
  - Wrong technique in drug usage process [Unknown]
  - No adverse event [Unknown]
